FAERS Safety Report 8354638-X (Version None)
Quarter: 2012Q2

REPORT INFORMATION
  Report Type: 
  Country: None (occurrence: None)
  Receive Date: 20120511
  Receipt Date: 20120507
  Transmission Date: 20120825
  Serious: Yes (Disabling, Other)
  Sender: FDA-Public Use
  Company Number: US-MERCK-1112USA01778

PATIENT
  Age: 54 Year
  Sex: Female
  Weight: 82 kg

DRUGS (4)
  1. ACTONEL [Suspect]
     Indication: OSTEOPENIA
     Route: 048
     Dates: start: 20081001, end: 20090601
  2. FOSAMAX PLUS D [Suspect]
     Indication: OSTEOPENIA
     Route: 048
     Dates: start: 19980901, end: 20100601
  3. FOSAMAX [Suspect]
     Route: 048
     Dates: start: 19980901, end: 20100601
  4. FOSAMAX [Suspect]
     Indication: OSTEOPENIA
     Route: 048
     Dates: start: 19980901, end: 20080901

REACTIONS (21)
  - GAIT DISTURBANCE [None]
  - BALANCE DISORDER [None]
  - JOINT SWELLING [None]
  - FALL [None]
  - STRESS FRACTURE [None]
  - INFLAMMATION [None]
  - MEDICAL DEVICE PAIN [None]
  - BONE DISORDER [None]
  - ENCHONDROMA [None]
  - BURSITIS [None]
  - OSTEOPOROSIS [None]
  - BONE NEOPLASM [None]
  - SOFT TISSUE DISORDER [None]
  - JOINT STIFFNESS [None]
  - ASTHENIA [None]
  - FEMUR FRACTURE [None]
  - HYPERTENSION [None]
  - PATELLOFEMORAL PAIN SYNDROME [None]
  - MUSCLE INJURY [None]
  - CONDITION AGGRAVATED [None]
  - WEIGHT BEARING DIFFICULTY [None]
